FAERS Safety Report 4831478-7 (Version None)
Quarter: 2005Q4

REPORT INFORMATION
  Report Type: 
  Country: None (occurrence: None)
  Receive Date: 20051116
  Receipt Date: 20051104
  Transmission Date: 20060501
  Serious: Yes (Other)
  Sender: FDA-Public Use
  Company Number: 2005-BP-19196RO

PATIENT
  Age: 53 Year
  Sex: Male

DRUGS (2)
  1. LORAZEPAM [Suspect]
     Indication: SEDATION
     Dosage: 2166 MG OVER 8 DAYS, IV
     Route: 042
  2. PROPYLENE GLYCOL [Suspect]
     Dosage: 899 GM OVER 8 DAYS, IV
     Route: 042

REACTIONS (6)
  - BLOOD BICARBONATE DECREASED [None]
  - BLOOD CREATININE INCREASED [None]
  - DRUG TOXICITY [None]
  - SEPSIS [None]
  - THERAPY NON-RESPONDER [None]
  - URINE OUTPUT DECREASED [None]
